FAERS Safety Report 7440873-1 (Version None)
Quarter: 2011Q2

REPORT INFORMATION
  Report Type: 
  Country: None (occurrence: None)
  Receive Date: 20110427
  Receipt Date: 20090930
  Transmission Date: 20111010
  Serious: Yes (Other)
  Sender: FDA-Public Use
  Company Number: US-BAYER-200934858NA

PATIENT
  Age: 60 Year
  Sex: Female
  Weight: 122.45 kg

DRUGS (17)
  1. PHENYLEPHRINE HYDROCHLORIDE [Concomitant]
     Dosage: 4 UNK, UNK
     Route: 042
     Dates: start: 20050316
  2. PROTAMINE SULFATE [Concomitant]
     Dosage: 300 MG, UNK
     Route: 042
     Dates: start: 20050316
  3. XANAX [Concomitant]
     Dosage: 0.25 MG, UNK
     Route: 048
  4. VANCOMYCIN [Concomitant]
     Dosage: 1.5 G, UNK
     Route: 042
     Dates: start: 20050316
  5. PLATELETS [Concomitant]
     Dosage: 2 U, UNK
     Dates: start: 20050316
  6. TRASYLOL [Suspect]
     Dosage: 6 MILLION KIU, UNK
     Dates: start: 20050316, end: 20050316
  7. CARDIZEM [Concomitant]
     Dosage: 180 MG, UNK
     Route: 048
  8. RED BLOOD CELLS [Concomitant]
     Dosage: 2 U, UNK
     Dates: start: 20050316
  9. PLASMA [Concomitant]
     Dosage: 2 U, UNK
     Dates: start: 20050316
  10. TRASYLOL [Suspect]
     Indication: CORONARY ARTERY BYPASS
     Dosage: 6.0 KIU, UNK
     Route: 042
     Dates: start: 20050316, end: 20050316
  11. LANTUS [Concomitant]
     Dosage: 26 U, UNK
     Route: 058
  12. DIPYRIDAMOLE [Concomitant]
     Dosage: 75 MG, UNK
  13. HEPARIN [Concomitant]
     Dosage: 40000 U, UNK
     Route: 042
     Dates: start: 20050316
  14. ACTOS [Concomitant]
     Dosage: 30 MG, UNK
     Route: 048
  15. LASIX [Concomitant]
     Dosage: 40 MG, UNK
     Route: 048
     Dates: start: 19900101
  16. ACETYLSALICYLIC ACID SRT [Concomitant]
     Dosage: 325 MG, UNK
     Route: 048
  17. MANNITOL [Concomitant]
     Dosage: 50 G, UNK
     Dates: start: 20050316

REACTIONS (10)
  - ANXIETY [None]
  - FEAR [None]
  - RENAL FAILURE [None]
  - EMOTIONAL DISTRESS [None]
  - STRESS [None]
  - UNEVALUABLE EVENT [None]
  - RENAL IMPAIRMENT [None]
  - RENAL INJURY [None]
  - INJURY [None]
  - PAIN [None]
